FAERS Safety Report 8293441-6 (Version None)
Quarter: 2012Q2

REPORT INFORMATION
  Report Type: 
  Country: None (occurrence: None)
  Receive Date: 20120417
  Receipt Date: 20120416
  Transmission Date: 20120825
  Serious: Yes (Hospitalization)
  Sender: FDA-Public Use
  Company Number: IT-MERCK-1203ITA00059

PATIENT
  Age: 78 Year
  Sex: Female

DRUGS (12)
  1. AMIODARONE HYDROCHLORIDE [Concomitant]
     Route: 048
  2. DOMPERIDONE [Concomitant]
     Route: 065
  3. ACETAMINOPHEN AND OXYCODONE HYDROCHLORIDE [Concomitant]
     Route: 065
  4. PRIMAXIN [Suspect]
     Indication: SEPSIS
     Route: 041
     Dates: start: 20091220, end: 20091227
  5. ALPRAZOLAM [Concomitant]
     Route: 065
  6. LORAZEPAM [Concomitant]
     Route: 065
  7. RABEPRAZOLE SODIUM [Concomitant]
     Route: 065
  8. POTASSIUM CHLORIDE [Concomitant]
     Route: 065
  9. WARFARIN SODIUM [Suspect]
     Indication: ATRIAL FIBRILLATION
     Route: 048
     Dates: start: 20041224, end: 20091224
  10. FUROSEMIDE SODIUM [Concomitant]
     Route: 065
  11. VENLAFAXINE HYDROCHLORIDE [Concomitant]
     Route: 065
  12. LEUCOVORIN CALCIUM [Concomitant]
     Route: 065

REACTIONS (1)
  - HYPOCOAGULABLE STATE [None]
